FAERS Safety Report 12439952 (Version 2)
Quarter: 2016Q2

REPORT INFORMATION
  Report Type: Report from Study
  Country: AR (occurrence: AR)
  Receive Date: 20160606
  Receipt Date: 20160623
  Transmission Date: 20160815
  Serious: Yes (Other)
  Sender: FDA-Public Use
  Company Number: PHHY2016AR076936

PATIENT
  Age: 57 Year
  Sex: Female

DRUGS (7)
  1. SINTROM [Suspect]
     Active Substance: ACENOCOUMAROL
     Indication: CARDIAC FAILURE
     Dosage: 4 MG, UNK
     Route: 065
  2. SINTROM [Suspect]
     Active Substance: ACENOCOUMAROL
     Indication: THROMBOSIS
     Dosage: 3 MG, QD
     Route: 065
     Dates: start: 201009
  3. DIOVAN D [Suspect]
     Active Substance: HYDROCHLOROTHIAZIDE\VALSARTAN
     Indication: HYPERTENSION
     Dosage: 0.5 DF (HYDROCHLOROTHIAZIDE 25 MG, VALSARTAN 160 MG), QD (HALF TABLET DAILY)
     Route: 065
  4. CARVEDILOL. [Concomitant]
     Active Substance: CARVEDILOL
     Indication: BLOOD PRESSURE INCREASED
     Dosage: 2 DF, QD
     Route: 065
  5. ALPLAX [Concomitant]
     Indication: PRODUCT USED FOR UNKNOWN INDICATION
     Dosage: OCCASIONALLY
     Route: 065
  6. SINTROM [Suspect]
     Active Substance: ACENOCOUMAROL
     Indication: MITRAL VALVE INCOMPETENCE
  7. SINTROM [Suspect]
     Active Substance: ACENOCOUMAROL
     Indication: ARRHYTHMIA

REACTIONS (5)
  - Mitral valve incompetence [Unknown]
  - Thrombosis [Unknown]
  - Wrong technique in product usage process [Unknown]
  - Arrhythmia [Unknown]
  - Hypothyroidism [Unknown]

NARRATIVE: CASE EVENT DATE: 201509
